FAERS Safety Report 10046477 (Version 1)
Quarter: 2014Q1

REPORT INFORMATION
  Report Type: Spontaneous
  Country: US (occurrence: None)
  Receive Date: 20140328
  Receipt Date: 20140328
  Transmission Date: 20141002
  Serious: Yes (Life-Threatening, Hospitalization)
  Sender: FDA-Public Use
  Company Number: None

PATIENT
  Age: 48 Year
  Sex: Male
  Weight: 111.13 kg

DRUGS (1)
  1. TEST X180 FORCE FACTOR [Suspect]
     Indication: ASTHENIA
     Dosage: 1 PILL 2X A DAY TWICE DAILY TAKEN BY MOUTH
     Dates: start: 20120901, end: 20120923

REACTIONS (1)
  - Haemorrhagic stroke [None]
